FAERS Safety Report 6008146-1 (Version None)
Quarter: 2008Q4

REPORT INFORMATION
  Report Type: 
  Country: None (occurrence: None)
  Receive Date: 20081217
  Receipt Date: 20080715
  Transmission Date: 20090506
  Serious: No
  Sender: FDA-Public Use
  Company Number: US-ASTRAZENECA-2008UW14201

PATIENT
  Age: 78 Year
  Sex: Female

DRUGS (7)
  1. CRESTOR [Suspect]
     Indication: BLOOD CHOLESTEROL INCREASED
     Dosage: 20 MG
  2. ASPIRIN [Concomitant]
  3. SYNTHROID [Concomitant]
  4. PAXIL [Concomitant]
  5. CENTRUM SILVER [Concomitant]
  6. ARTHROTEC [Concomitant]
  7. DILTIAZEM [Concomitant]

REACTIONS (3)
  - DYSURIA [None]
  - ILL-DEFINED DISORDER [None]
  - INTESTINAL FUNCTIONAL DISORDER [None]
